FAERS Safety Report 24781752 (Version 1)
Quarter: 2024Q4

REPORT INFORMATION
  Report Type: Spontaneous
  Country: PL (occurrence: PL)
  Receive Date: 20241227
  Receipt Date: 20241227
  Transmission Date: 20250114
  Serious: Yes (Other)
  Sender: BOEHRINGER INGELHEIM
  Company Number: PL-BoehringerIngelheim-2024-BI-067568

PATIENT
  Age: 86 Year
  Sex: Female

DRUGS (9)
  1. HYDROCHLOROTHIAZIDE\TELMISARTAN [Suspect]
     Active Substance: HYDROCHLOROTHIAZIDE\TELMISARTAN
     Indication: Hypertension
     Dosage: THE PATIENT TAKES A COMBINED PREPARATION OF TELMISARTAN 40 MG + HYDROCHLOROTHIAZIDE 12.5 MG
  2. HYDROCHLOROTHIAZIDE\TELMISARTAN [Suspect]
     Active Substance: HYDROCHLOROTHIAZIDE\TELMISARTAN
     Dosage: INCREASED DOSE: THE DOSE OF THE COMBINED PREPARATION TELMISARTAN 80 MG + HYDROCHLOROTHIAZIDE 25 MG.
  3. TELMISARTAN [Suspect]
     Active Substance: TELMISARTAN
     Indication: Hypertension
     Dosage: CHANGED ON A COMBINED PREPARATION OF TELMISARTAN 40 MG + HYDROCHLOROTHIAZIDE 12.5 MG
  4. BISOPROLOL [Suspect]
     Active Substance: BISOPROLOL
     Indication: Hypertension
  5. LERCANIDIPINE [Concomitant]
     Active Substance: LERCANIDIPINE
     Indication: Hypertension
     Route: 065
  6. ASPIRIN [Concomitant]
     Active Substance: ASPIRIN
     Indication: Prophylaxis
     Dosage: TAKEN CHRONICALLY
  7. METFORMIN [Concomitant]
     Active Substance: METFORMIN HYDROCHLORIDE
     Indication: Type 2 diabetes mellitus
     Dosage: TREATED FOR A LONG TIME
  8. ATORVASTATIN [Concomitant]
     Active Substance: ATORVASTATIN
     Indication: Hypercholesterolaemia
  9. POTASSIUM [Concomitant]
     Active Substance: POTASSIUM
     Indication: Supplementation therapy

REACTIONS (2)
  - Sinus bradycardia [Unknown]
  - Drug ineffective [Recovered/Resolved]
